FAERS Safety Report 8260932-3 (Version None)
Quarter: 2012Q2

REPORT INFORMATION
  Report Type: 
  Country: None (occurrence: None)
  Receive Date: 20120402
  Receipt Date: 20120319
  Transmission Date: 20120825
  Serious: Yes (Disabling, Other)
  Sender: FDA-Public Use
  Company Number: NSR_00499_2012

PATIENT
  Sex: Male

DRUGS (2)
  1. BACLOFEN [Concomitant]
  2. BACLOFEN [Suspect]
     Indication: MULTIPLE SCLEROSIS
     Dosage: (80 MG QD, ORAL)
     Route: 048
     Dates: start: 20050419, end: 20120311

REACTIONS (4)
  - PRODUCT SUBSTITUTION ISSUE [None]
  - MUSCULOSKELETAL STIFFNESS [None]
  - DRUG EFFECT DECREASED [None]
  - FALL [None]
